FAERS Safety Report 23748647 (Version 1)
Quarter: 2024Q2

REPORT INFORMATION
  Report Type: Spontaneous
  Country: US (occurrence: None)
  Receive Date: 20240416
  Receipt Date: 20240416
  Transmission Date: 20240715
  Serious: No
  Sender: FDA-Public Use
  Company Number: None

PATIENT

DRUGS (1)
  1. COSMETICS [Suspect]
     Active Substance: COSMETICS

REACTIONS (1)
  - Rash [None]
